FAERS Safety Report 18917149 (Version 1)
Quarter: 2021Q1

REPORT INFORMATION
  Report Type: Spontaneous
  Country: US (occurrence: US)
  Receive Date: 20210219
  Receipt Date: 20210219
  Transmission Date: 20210420
  Serious: No
  Sender: FDA-Public Use
  Company Number: NVSC2021US031029

PATIENT
  Sex: Female

DRUGS (1)
  1. COSENTYX [Suspect]
     Active Substance: SECUKINUMAB
     Indication: PSORIASIS
     Dosage: 300 MG, QW, ONCE A WEEK FOR 5 WEEKS, BENEATH THE SKIN USUALLY VIA INJECTION
     Route: 058

REACTIONS (3)
  - Memory impairment [Unknown]
  - Product dose omission in error [Unknown]
  - Drug ineffective [Unknown]
